FAERS Safety Report 8925285 (Version 8)
Quarter: 2013Q3

REPORT INFORMATION
  Report Type: Report from Study
  Country: FR (occurrence: FR)
  Receive Date: 20121126
  Receipt Date: 20130828
  Transmission Date: 20140515
  Serious: Yes (Hospitalization)
  Sender: FDA-Public Use
  Company Number: FR-MPIJNJ-2012-07632

PATIENT
  Sex: 0

DRUGS (5)
  1. VELCADE [Suspect]
     Indication: MANTLE CELL LYMPHOMA
     Dosage: 2.2 MG, UNK
     Route: 058
     Dates: start: 20120321, end: 20120921
  2. MABTHERA [Suspect]
     Indication: MANTLE CELL LYMPHOMA
     Dosage: 635 MG, CYCLIC
     Route: 042
     Dates: start: 20120321, end: 20120918
  3. LEVACT [Suspect]
     Indication: MANTLE CELL LYMPHOMA
     Dosage: 150 MG, UNK
     Route: 042
     Dates: start: 20120321
  4. DEXAMETHASONE [Suspect]
     Indication: MANTLE CELL LYMPHOMA
     Dosage: 40 MG, UNK
     Route: 042
     Dates: start: 20120322, end: 20120919
  5. FLUINDIONE [Concomitant]
     Indication: CARDIAC DISORDER

REACTIONS (5)
  - Listeriosis [Recovered/Resolved]
  - Hypogammaglobulinaemia [Unknown]
  - Immunosuppression [Recovered/Resolved]
  - Catheter site infection [Recovered/Resolved]
  - Dyspnoea [Recovered/Resolved]
